FAERS Safety Report 15061088 (Version 1)
Quarter: 2018Q2

REPORT INFORMATION
  Report Type: Spontaneous
  Country: US (occurrence: US)
  Receive Date: 20180625
  Receipt Date: 20180625
  Transmission Date: 20180711
  Serious: Yes (Other)
  Sender: FDA-Public Use
  Company Number: US-ROCHE-2103823

PATIENT
  Age: 82 Year
  Sex: Female

DRUGS (1)
  1. TECENTRIQ [Suspect]
     Active Substance: ATEZOLIZUMAB
     Indication: RENAL CELL CARCINOMA
     Route: 065

REACTIONS (6)
  - Hepatic enzyme increased [Unknown]
  - Off label use [Unknown]
  - Hepatitis [Unknown]
  - Infection [Unknown]
  - Intentional product use issue [Unknown]
  - Cough [Unknown]
